FAERS Safety Report 10196144 (Version 2)
Quarter: 2014Q3

REPORT INFORMATION
  Report Type: Spontaneous
  Country: ES (occurrence: ES)
  Receive Date: 20140527
  Receipt Date: 20140716
  Transmission Date: 20150326
  Serious: Yes (Death, Other)
  Sender: FDA-Public Use
  Company Number: ES-AMGEN-ESPSP2014038469

PATIENT
  Age: 80 Year
  Sex: Male
  Weight: 62 kg

DRUGS (3)
  1. NEUPOGEN [Suspect]
     Active Substance: FILGRASTIM
     Indication: ACUTE MONOCYTIC LEUKAEMIA
     Dosage: 48 UNK, UNK
     Route: 065
     Dates: start: 20140515
  2. NEUPOGEN [Suspect]
     Active Substance: FILGRASTIM
     Indication: NEUTROPENIA
     Dosage: 30 MU, 1 INJECTION PER DAY, UNK, QD
     Route: 058
     Dates: start: 20140505, end: 20140514
  3. VIDAZA [Suspect]
     Active Substance: AZACITIDINE
     Indication: ACUTE MONOCYTIC LEUKAEMIA
     Dosage: 7 DOSES IN TOTAL (5+2)
     Route: 058
     Dates: start: 20140407, end: 20140415

REACTIONS (1)
  - Bone marrow eosinophilic leukocyte count increased [Fatal]

NARRATIVE: CASE EVENT DATE: 20140515
